FAERS Safety Report 18195644 (Version 3)
Quarter: 2020Q4

REPORT INFORMATION
  Report Type: Spontaneous
  Country: BR (occurrence: BR)
  Receive Date: 20200825
  Receipt Date: 20201229
  Transmission Date: 20210113
  Serious: Yes (Other)
  Sender: FDA-Public Use
  Company Number: BR-ALLERGAN-2031650US

PATIENT
  Sex: Female

DRUGS (1)
  1. COMBIGAN [Suspect]
     Active Substance: BRIMONIDINE TARTRATE\TIMOLOL MALEATE
     Indication: GLAUCOMA
     Dosage: 2 GTT, Q12H

REACTIONS (5)
  - Blindness unilateral [Not Recovered/Not Resolved]
  - Eye irritation [Not Recovered/Not Resolved]
  - Packaging design issue [Unknown]
  - Product delivery mechanism issue [Unknown]
  - Product use complaint [Unknown]
